FAERS Safety Report 7589854-8 (Version None)
Quarter: 2011Q2

REPORT INFORMATION
  Report Type: 
  Country: None (occurrence: None)
  Receive Date: 20110627
  Receipt Date: 20110616
  Transmission Date: 20111010
  Serious: Yes (Death, Hospitalization)
  Sender: FDA-Public Use
  Company Number: 118667

PATIENT
  Age: 34 Year
  Sex: Female

DRUGS (1)
  1. MITOXANTRONE [Suspect]
     Indication: MULTIPLE SCLEROSIS
     Dosage: 12 MG/M2, 10 MG/M2

REACTIONS (12)
  - PANCYTOPENIA [None]
  - RASH GENERALISED [None]
  - DYSPNOEA [None]
  - LUNG INFILTRATION [None]
  - MULTI-ORGAN FAILURE [None]
  - ENDOCARDITIS [None]
  - PLEURAL EFFUSION [None]
  - TRICUSPID VALVE INCOMPETENCE [None]
  - SCLERAL HAEMORRHAGE [None]
  - SEPTIC SHOCK [None]
  - ACUTE PROMYELOCYTIC LEUKAEMIA [None]
  - MITRAL VALVE INCOMPETENCE [None]
